FAERS Safety Report 5475008-8 (Version None)
Quarter: 2007Q4

REPORT INFORMATION
  Report Type: 
  Country: None (occurrence: None)
  Receive Date: 20071002
  Receipt Date: 20070927
  Transmission Date: 20080405
  Serious: Yes (Other)
  Sender: FDA-Public Use
  Company Number: CA-ASTRAZENECA-2007UW22631

PATIENT
  Age: 72 Year
  Sex: Female

DRUGS (4)
  1. CRESTOR [Suspect]
     Indication: BLOOD CHOLESTEROL INCREASED
     Route: 048
     Dates: start: 20070501
  2. SEREVENT [Concomitant]
  3. FLOVENT [Concomitant]
  4. VENTOLIN [Concomitant]

REACTIONS (4)
  - ASTHMA [None]
  - DYSPNOEA [None]
  - INFARCTION [None]
  - LOSS OF CONSCIOUSNESS [None]
